FAERS Safety Report 4779416-X (Version None)
Quarter: 2005Q3

REPORT INFORMATION
  Report Type: 
  Country: None (occurrence: None)
  Receive Date: 20050914
  Receipt Date: 20050119
  Transmission Date: 20060218
  Serious: Yes (Hospitalization)
  Sender: FDA-Public Use
  Company Number: 163-20785-04120604

PATIENT
  Age: 67 Year
  Sex: Female
  Weight: 83.9154 kg

DRUGS (12)
  1. THALOMID [Suspect]
     Indication: SMALL CELL LUNG CANCER STAGE UNSPECIFIED
     Dosage: 200 MG, QHS, ORAL
     Route: 048
     Dates: start: 20041210, end: 20041227
  2. MAGNESIUM OXIDE (MAGNESIUM OXIDE) [Concomitant]
  3. CALCIUM (CALCIUM) [Concomitant]
  4. ALPRAZOLAM [Concomitant]
  5. THEOPHYLLINE [Concomitant]
  6. AMARYL [Concomitant]
  7. TORSEMIDE (TORASEMIDE) [Concomitant]
  8. FLUOXETINE HCL [Concomitant]
  9. KAY CIEL DURA-TABS [Concomitant]
  10. NAPROSYN [Concomitant]
  11. PHENYTOIN [Concomitant]
  12. NIFEDICAL XL (NIFEDIPINE) [Concomitant]

REACTIONS (4)
  - AORTIC VALVE STENOSIS [None]
  - DYSPNOEA [None]
  - FATIGUE [None]
  - OEDEMA [None]
